FAERS Safety Report 8967395 (Version 3)
Quarter: 2013Q1

REPORT INFORMATION
  Report Type: Report from Study
  Country: DE (occurrence: DE)
  Receive Date: 20121214
  Receipt Date: 20130204
  Transmission Date: 20140127
  Serious: Yes (Hospitalization)
  Sender: FDA-Public Use
  Company Number: DE-ABBOTT-12P-062-1019969-00

PATIENT
  Age: 41 None
  Sex: Male
  Weight: 113 kg

DRUGS (5)
  1. HUMIRA [Suspect]
     Indication: CROHN^S DISEASE
     Route: 058
     Dates: start: 20121019, end: 20121203
  2. ENTOCORT [Concomitant]
     Indication: CROHN^S DISEASE
     Dates: end: 2012
  3. AZATHIOPRINE [Concomitant]
     Indication: CROHN^S DISEASE
     Dates: end: 201212
  4. PREDNISOLONE [Concomitant]
     Indication: CROHN^S DISEASE
  5. COLESTYRAMIN [Concomitant]
     Indication: PRODUCT USED FOR UNKNOWN INDICATION

REACTIONS (3)
  - Blindness unilateral [Not Recovered/Not Resolved]
  - Thrombosis [Not Recovered/Not Resolved]
  - Melaena [Unknown]
